FAERS Safety Report 11573622 (Version 1)
Quarter: 2015Q3

REPORT INFORMATION
  Report Type: Spontaneous
  Country: US (occurrence: US)
  Receive Date: 20150929
  Receipt Date: 20150929
  Transmission Date: 20151125
  Serious: No
  Sender: FDA-Public Use
  Company Number: US-BAUSCH-SP08712

PATIENT
  Age: 57 Year
  Sex: Female
  Weight: 40.41 kg

DRUGS (4)
  1. VITAMIN D [Concomitant]
     Active Substance: CHOLECALCIFEROL
  2. CALCIUM [Concomitant]
     Active Substance: CALCIUM
  3. MOVIPREP [Suspect]
     Active Substance: ASCORBIC ACID\POLYETHYLENE GLYCOL 3350\POTASSIUM CHLORIDE\SODIUM ASCORBATE\SODIUM CHLORIDE\SODIUM SULFATE
     Indication: BOWEL PREPARATION
     Route: 048
     Dates: start: 20141210, end: 20141210
  4. ALDACTONE [Concomitant]
     Active Substance: SPIRONOLACTONE
     Indication: ALOPECIA

REACTIONS (4)
  - Drug effect delayed [Unknown]
  - Abdominal distension [Unknown]
  - Retching [Unknown]
  - Abdominal pain [Unknown]

NARRATIVE: CASE EVENT DATE: 20141210
